FAERS Safety Report 9092594 (Version 1)
Quarter: 2013Q1

REPORT INFORMATION
  Report Type: Spontaneous
  Country: US (occurrence: None)
  Receive Date: 20130213
  Receipt Date: 20130213
  Transmission Date: 20140127
  Serious: Yes (Life-Threatening, Hospitalization, Other)
  Sender: FDA-Public Use
  Company Number: None

PATIENT
  Age: 54 Year
  Sex: Female
  Weight: 96.62 kg

DRUGS (1)
  1. LISINOPRIL + HYDROCHLOROTHIAZIDE [Suspect]
     Route: 048
     Dates: start: 20090101, end: 20130203

REACTIONS (2)
  - Angioedema [None]
  - Dysarthria [None]
